FAERS Safety Report 7275115-3 (Version None)
Quarter: 2011Q1

REPORT INFORMATION
  Report Type: 
  Country: None (occurrence: None)
  Receive Date: 20110204
  Receipt Date: 20110124
  Transmission Date: 20110831
  Serious: Yes (Other)
  Sender: FDA-Public Use
  Company Number: PHEH2008US08016

PATIENT
  Sex: Male

DRUGS (16)
  1. CEPHALEXIN [Concomitant]
     Dosage: UNK
     Dates: start: 20050601
  2. MELPHALAN [Concomitant]
     Dosage: 2MG X 4 DAYS
     Dates: start: 20060301
  3. LASIX [Concomitant]
     Dosage: 20MG PRN
     Dates: start: 20060301
  4. CHEMOTHERAPEUTICS NOS [Concomitant]
     Dosage: UNK
     Dates: start: 20060401
  5. ZOMETA [Suspect]
     Indication: MULTIPLE MYELOMA
     Dosage: 4MG IN 500CC NS MONTHLY
     Dates: start: 20011228
  6. IBUPROFEN [Concomitant]
  7. AREDIA [Suspect]
     Indication: MULTIPLE MYELOMA
     Dosage: 90MG
     Dates: start: 20000711, end: 20011127
  8. VELCADE [Concomitant]
  9. PENICILLIN VK [Concomitant]
     Dosage: 250 MG
     Dates: start: 20041201
  10. ALTACE [Concomitant]
  11. CLINDAMYCIN [Concomitant]
     Dosage: UNK
     Dates: start: 20041201
  12. ZANTAC [Concomitant]
  13. METHYLPREDNISOLONE [Concomitant]
     Dosage: UNK
     Dates: start: 20040101
  14. AMARYL [Concomitant]
     Dosage: 4 MG
  15. GLUCOTROL [Concomitant]
  16. STEROIDS NOS [Concomitant]
     Dosage: HIGH DOSE

REACTIONS (46)
  - IMPAIRED HEALING [None]
  - HYPOAESTHESIA [None]
  - NAUSEA [None]
  - HYPERTENSION [None]
  - METATARSALGIA [None]
  - PAIN IN EXTREMITY [None]
  - CARDIAC MURMUR [None]
  - BONE DENSITY DECREASED [None]
  - VOMITING [None]
  - ANXIETY [None]
  - HYPOACUSIS [None]
  - TENDONITIS [None]
  - OSTEOMYELITIS [None]
  - MULTIPLE MYELOMA [None]
  - ANAEMIA [None]
  - CAUDA EQUINA SYNDROME [None]
  - OSTEONECROSIS [None]
  - HAEMOGLOBIN ABNORMAL [None]
  - OEDEMA [None]
  - INTERVERTEBRAL DISC DEGENERATION [None]
  - OSTEONECROSIS OF JAW [None]
  - BONE DISORDER [None]
  - MOUTH HAEMORRHAGE [None]
  - FATIGUE [None]
  - PLASMACYTOSIS [None]
  - PERIPHERAL VASCULAR DISORDER [None]
  - INSOMNIA [None]
  - HYPERCALCAEMIA [None]
  - TYPE 2 DIABETES MELLITUS [None]
  - PAIN IN JAW [None]
  - ARTHRITIS [None]
  - BLOOD GLUCOSE INCREASED [None]
  - FRACTURE [None]
  - DEPRESSION [None]
  - BACK PAIN [None]
  - TINNITUS [None]
  - RIB FRACTURE [None]
  - SCOLIOSIS [None]
  - EPISTAXIS [None]
  - NECK PAIN [None]
  - SINUSITIS [None]
  - PLASMACYTOMA [None]
  - BIOPSY GINGIVAL [None]
  - LIGHT CHAIN ANALYSIS INCREASED [None]
  - INFLUENZA LIKE ILLNESS [None]
  - ARTHRALGIA [None]
